FAERS Safety Report 8426765-X (Version None)
Quarter: 2012Q2

REPORT INFORMATION
  Report Type: 
  Country: None (occurrence: None)
  Receive Date: 20120611
  Receipt Date: 20120604
  Transmission Date: 20120825
  Serious: Yes (Other)
  Sender: FDA-Public Use
  Company Number: PHHY2012JP049146

PATIENT
  Age: 38 Year
  Sex: Female

DRUGS (3)
  1. VOLTAREN [Suspect]
     Indication: DYSMENORRHOEA
     Route: 048
  2. LEUPROLIDE ACETATE [Concomitant]
     Indication: ENDOMETRIOSIS
     Route: 058
  3. SCOPOLAMINE [Concomitant]
     Indication: DYSMENORRHOEA

REACTIONS (1)
  - PLATELET AGGREGATION ABNORMAL [None]
